FAERS Safety Report 4855859-0 (Version None)
Quarter: 2005Q4

REPORT INFORMATION
  Report Type: 
  Country: None (occurrence: None)
  Receive Date: 20051215
  Receipt Date: 20051215
  Transmission Date: 20060501
  Serious: Yes (Other)
  Sender: FDA-Public Use
  Company Number: None

PATIENT
  Age: 53 Year
  Sex: Female
  Weight: 108.8633 kg

DRUGS (6)
  1. KADIAN [Suspect]
     Indication: ARTHRALGIA
     Dosage: 1 DAILY PO
     Route: 048
     Dates: start: 20050804, end: 20051014
  2. KADIAN [Suspect]
     Indication: BACK PAIN
     Dosage: 1 DAILY PO
     Route: 048
     Dates: start: 20050804, end: 20051014
  3. KADIAN [Suspect]
     Indication: NECK PAIN
     Dosage: 1 DAILY PO
     Route: 048
     Dates: start: 20050804, end: 20051014
  4. KADIAN [Suspect]
     Indication: ARTHRALGIA
     Dosage: 1 DAILY PO
     Route: 048
     Dates: start: 20051028, end: 20051115
  5. KADIAN [Suspect]
     Indication: BACK PAIN
     Dosage: 1 DAILY PO
     Route: 048
     Dates: start: 20051028, end: 20051115
  6. KADIAN [Suspect]
     Indication: NECK PAIN
     Dosage: 1 DAILY PO
     Route: 048
     Dates: start: 20051028, end: 20051115

REACTIONS (4)
  - BRONCHITIS [None]
  - JOINT SWELLING [None]
  - OEDEMA PERIPHERAL [None]
  - PNEUMONIA [None]
